FAERS Safety Report 8413264-4 (Version None)
Quarter: 2012Q2

REPORT INFORMATION
  Report Type: 
  Country: None (occurrence: None)
  Receive Date: 20120605
  Receipt Date: 20120530
  Transmission Date: 20120825
  Serious: Yes (Disabling, Other)
  Sender: FDA-Public Use
  Company Number: US-PFIZER INC-2012131202

PATIENT
  Sex: Male
  Weight: 95.238 kg

DRUGS (2)
  1. LYRICA [Suspect]
     Indication: DIABETIC NEUROPATHY
     Dosage: 600 MG, 2X/DAY
     Route: 048
  2. LYRICA [Suspect]
     Dosage: 50 MG, 3X/DAY
     Route: 048

REACTIONS (4)
  - FINGER AMPUTATION [None]
  - TOE AMPUTATION [None]
  - CARDIAC DISORDER [None]
  - DIABETES MELLITUS [None]
